FAERS Safety Report 5429859-6 (Version None)
Quarter: 2007Q3

REPORT INFORMATION
  Report Type: 
  Country: None (occurrence: None)
  Receive Date: 20070827
  Receipt Date: 20070813
  Transmission Date: 20080115
  Serious: Yes (Life-Threatening, Hospitalization)
  Sender: FDA-Public Use
  Company Number: GXKR2007NL06902

PATIENT
  Age: 29 Year
  Sex: Male

DRUGS (2)
  1. VENLAFAXIINE HCL [Suspect]
     Indication: INCORRECT DOSE ADMINISTERED
     Dosage: 22.5 G, SINGLE DOSE
  2. OXAZEPAM [Suspect]
     Indication: INCORRECT DOSE ADMINISTERED
     Dosage: 5 G, SINGLE DOSE

REACTIONS (17)
  - AGITATION [None]
  - BLOOD INSULIN INCREASED [None]
  - BLOOD PRESSURE INCREASED [None]
  - CLONUS [None]
  - DEPRESSED LEVEL OF CONSCIOUSNESS [None]
  - EYE MOVEMENT DISORDER [None]
  - GASTRIC LAVAGE [None]
  - HYPOGLYCAEMIA [None]
  - INSULIN C-PEPTIDE INCREASED [None]
  - INTENTIONAL OVERDOSE [None]
  - INTUBATION [None]
  - MECHANICAL VENTILATION [None]
  - MYDRIASIS [None]
  - PNEUMONIA ASPIRATION [None]
  - RHABDOMYOLYSIS [None]
  - SEROTONIN SYNDROME [None]
  - SINUS TACHYCARDIA [None]
